FAERS Safety Report 7680385-3 (Version None)
Quarter: 2011Q3

REPORT INFORMATION
  Report Type: 
  Country: None (occurrence: None)
  Receive Date: 20110812
  Receipt Date: 20110808
  Transmission Date: 20111222
  Serious: Yes (Other)
  Sender: FDA-Public Use
  Company Number: US-TEVA-295397USA

PATIENT
  Sex: Female
  Weight: 54.48 kg

DRUGS (5)
  1. ISOTRETINOIN [Concomitant]
  2. BUPROPION HCL [Concomitant]
     Dosage: 150 MILLIGRAM;
  3. ZOLPIDEM [Suspect]
     Indication: INSOMNIA
     Dosage: 10 MILLIGRAM; AT BEDTIME
     Dates: start: 20070101, end: 20110412
  4. ESCITALOPRAM OXALATE [Concomitant]
     Dosage: 5 MILLIGRAM;
  5. OBETROL [Concomitant]

REACTIONS (3)
  - SOMNAMBULISM [None]
  - ROAD TRAFFIC ACCIDENT [None]
  - WRIST FRACTURE [None]
